FAERS Safety Report 24439217 (Version 1)
Quarter: 2024Q4

REPORT INFORMATION
  Report Type: Spontaneous
  Country: US (occurrence: US)
  Receive Date: 20241015
  Receipt Date: 20241015
  Transmission Date: 20250115
  Serious: No
  Sender: AMGEN
  Company Number: US-AMGEN-USASP2024199856

PATIENT
  Age: 44 Year
  Sex: Male

DRUGS (3)
  1. PROLIA [Suspect]
     Active Substance: DENOSUMAB
     Indication: Hypercalcaemia
     Dosage: UNK
     Route: 065
     Dates: start: 202307
  2. SILICONE [Concomitant]
     Active Substance: SILICONE
  3. CALCITONIN [Concomitant]
     Active Substance: CALCITONIN

REACTIONS (3)
  - Drug effective for unapproved indication [Unknown]
  - Blood calcium increased [Unknown]
  - Off label use [Unknown]

NARRATIVE: CASE EVENT DATE: 20231001
